FAERS Safety Report 12298882 (Version 5)
Quarter: 2019Q3

REPORT INFORMATION
  Report Type: Spontaneous
  Country: CA (occurrence: CA)
  Receive Date: 20160425
  Receipt Date: 20190726
  Transmission Date: 20191004
  Serious: Yes (Other)
  Sender: FDA-Public Use
  Company Number: CA-ROCHE-1745502

PATIENT
  Sex: Male

DRUGS (17)
  1. CELLCEPT [Suspect]
     Active Substance: MYCOPHENOLATE MOFETIL\MYCOPHENOLATE MOFETIL HYDROCHLORIDE
     Indication: PEMPHIGUS
     Route: 048
  2. RITUXAN [Suspect]
     Active Substance: RITUXIMAB
     Indication: PEMPHIGUS
     Dosage: DAY 1 AND DAY 15
     Route: 042
     Dates: start: 20160829
  3. IBUPROFEN. [Concomitant]
     Active Substance: IBUPROFEN
     Indication: OFF LABEL USE
     Dosage: AS REQUIRED
     Route: 065
  4. VENTOLIN [Concomitant]
     Active Substance: ALBUTEROL SULFATE
     Indication: OFF LABEL USE
     Route: 055
  5. METHYLPREDNISOLONE. [Concomitant]
     Active Substance: METHYLPREDNISOLONE
     Indication: PREMEDICATION
     Dosage: ONGOING
     Route: 042
     Dates: start: 20160829
  6. RITUXAN [Suspect]
     Active Substance: RITUXIMAB
     Indication: OFF LABEL USE
  7. ALEVE [Concomitant]
     Active Substance: NAPROXEN SODIUM
     Indication: OFF LABEL USE
     Dosage: AS REQUIRED
     Route: 065
  8. PREDNISONE. [Concomitant]
     Active Substance: PREDNISONE
     Indication: OFF LABEL USE
  9. METHYLPREDNISOLONE. [Concomitant]
     Active Substance: METHYLPREDNISOLONE
     Indication: OFF LABEL USE
  10. RAMIPRIL. [Concomitant]
     Active Substance: RAMIPRIL
     Indication: OFF LABEL USE
  11. MOMETASONE FUROATE. [Concomitant]
     Active Substance: MOMETASONE FUROATE
     Indication: OFF LABEL USE
  12. ACETAMINOPHEN. [Concomitant]
     Active Substance: ACETAMINOPHEN
     Indication: PREMEDICATION
     Dosage: ONGOING
     Route: 048
     Dates: start: 20160829
  13. ACETAMINOPHEN. [Concomitant]
     Active Substance: ACETAMINOPHEN
     Indication: OFF LABEL USE
  14. DIPHENHYDRAMINE HCL [Concomitant]
     Active Substance: DIPHENHYDRAMINE HYDROCHLORIDE
     Indication: PREMEDICATION
     Dosage: ONGOING
     Route: 048
     Dates: start: 20160829
  15. DIPHENHYDRAMINE HCL [Concomitant]
     Active Substance: DIPHENHYDRAMINE HYDROCHLORIDE
     Indication: OFF LABEL USE
  16. DULOXETINE. [Concomitant]
     Active Substance: DULOXETINE
     Indication: OFF LABEL USE
  17. CELLCEPT [Suspect]
     Active Substance: MYCOPHENOLATE MOFETIL\MYCOPHENOLATE MOFETIL HYDROCHLORIDE
     Indication: OFF LABEL USE
     Route: 048

REACTIONS (16)
  - Haemoptysis [Unknown]
  - Oral mucosa erosion [Not Recovered/Not Resolved]
  - Epistaxis [Unknown]
  - Oropharyngeal pain [Unknown]
  - Back pain [Recovering/Resolving]
  - Mouth ulceration [Not Recovered/Not Resolved]
  - Gingival bleeding [Unknown]
  - Skin erosion [Not Recovered/Not Resolved]
  - Product use in unapproved indication [Unknown]
  - Pemphigus [Not Recovered/Not Resolved]
  - Off label use [Unknown]
  - Disease progression [Unknown]
  - Skin ulcer [Not Recovered/Not Resolved]
  - Therapeutic response shortened [Unknown]
  - Nasopharyngitis [Unknown]
  - Renal pain [Recovering/Resolving]
